FAERS Safety Report 23700899 (Version 1)
Quarter: 2024Q2

REPORT INFORMATION
  Report Type: Spontaneous
  Country: GB (occurrence: None)
  Receive Date: 20240403
  Receipt Date: 20240403
  Transmission Date: 20240716
  Serious: Yes (Disabling, Other)
  Sender: FDA-Public Use
  Company Number: 2024A073255

PATIENT
  Age: 63 Year
  Sex: Male
  Weight: 129 kg

DRUGS (8)
  1. DAPAGLIFLOZIN [Suspect]
     Active Substance: DAPAGLIFLOZIN
     Dosage: 10,EVERY DAY
     Route: 048
     Dates: start: 20240319, end: 20240320
  2. ATORVASTATIN [Concomitant]
     Active Substance: ATORVASTATIN
     Dosage: 1 EVERY DAY
     Route: 048
     Dates: start: 20231022
  3. CODEINE PHOSPHATE [Concomitant]
     Active Substance: CODEINE PHOSPHATE
     Dosage: TAKE 1-2 TABLETS 4 TIMES A DAY
     Route: 048
     Dates: start: 20240319
  4. GLICLAZIDE [Concomitant]
     Active Substance: GLICLAZIDE
     Dosage: WITH FOOD TWO TIMES A DAY
     Route: 048
     Dates: start: 20231022
  5. NAPROXEN [Concomitant]
     Active Substance: NAPROXEN
     Dosage: 1 TWO TIMES A DAY
     Route: 048
     Dates: start: 20240319
  6. OLANZAPINE [Concomitant]
     Active Substance: OLANZAPINE
     Dosage: 1 EVERY DAY
     Route: 048
     Dates: start: 20231022
  7. OMEPRAZOLE [Concomitant]
     Active Substance: OMEPRAZOLE
     Dosage: 1 EVERY DAY
     Route: 048
     Dates: start: 20240319
  8. PIOGLITAZONE [Concomitant]
     Active Substance: PIOGLITAZONE
     Dosage: 1 EVERY DAY
     Route: 048
     Dates: start: 20231022, end: 20240307

REACTIONS (3)
  - Abdominal pain [Recovered/Resolved]
  - Diarrhoea [Recovered/Resolved]
  - Muscle spasms [Recovered/Resolved]

NARRATIVE: CASE EVENT DATE: 20240320
